FAERS Safety Report 10609780 (Version 2)
Quarter: 2014Q4

REPORT INFORMATION
  Report Type: Spontaneous
  Country: FR (occurrence: None)
  Receive Date: 20141124
  Receipt Date: 20141204
  Transmission Date: 20150529
  Serious: Yes (Hospitalization, Other)
  Sender: FDA-Public Use
  Company Number: ADR-2014-02216

PATIENT
  Age: 50 Year
  Sex: Male

DRUGS (2)
  1. BACLOFEN. [Suspect]
     Active Substance: BACLOFEN
     Indication: ALCOHOLISM
     Dosage: DAY
     Dates: start: 20130412
  2. ALCOHOL (ETHANOL) [Suspect]
     Active Substance: ALCOHOL

REACTIONS (9)
  - Insomnia [None]
  - Sensory disturbance [None]
  - Delirium [None]
  - Hyperhidrosis [None]
  - Unevaluable event [None]
  - Stereotypy [None]
  - Sluggishness [None]
  - Abnormal behaviour [None]
  - Diplegia [None]

NARRATIVE: CASE EVENT DATE: 20141010
